FAERS Safety Report 9260113 (Version 3)
Quarter: 2014Q3

REPORT INFORMATION
  Report Type: Spontaneous
  Country: US (occurrence: US)
  Receive Date: 20130429
  Receipt Date: 20140901
  Transmission Date: 20150326
  Serious: Yes (Other)
  Sender: FDA-Public Use
  Company Number: US-ASTRAZENECA-2005UW06126

PATIENT
  Age: 57 Year
  Sex: Female

DRUGS (27)
  1. ARIMIDEX [Suspect]
     Active Substance: ANASTROZOLE
     Indication: BREAST CANCER
     Route: 048
     Dates: start: 20031121
  2. OMEPRAZOLE. [Suspect]
     Active Substance: OMEPRAZOLE
     Indication: DYSPEPSIA
     Route: 048
     Dates: start: 20080608
  3. PRAVACHOL [Concomitant]
     Active Substance: PRAVASTATIN SODIUM
  4. CLONAZEPAM. [Concomitant]
     Active Substance: CLONAZEPAM
  5. NEURONTIN [Concomitant]
     Active Substance: GABAPENTIN
  6. TEMAZEPAM. [Concomitant]
     Active Substance: TEMAZEPAM
     Dates: start: 20030712
  7. VALTREX [Concomitant]
     Active Substance: VALACYCLOVIR HYDROCHLORIDE
  8. PERCOCET [Concomitant]
     Active Substance: ACETAMINOPHEN\OXYCODONE HYDROCHLORIDE
     Dosage: 5 MG-325 MG
     Route: 048
  9. NEXIUM [Suspect]
     Active Substance: ESOMEPRAZOLE MAGNESIUM
     Indication: GASTROOESOPHAGEAL REFLUX DISEASE
     Route: 048
     Dates: start: 2003, end: 2006
  10. LEXAPRO [Concomitant]
     Active Substance: ESCITALOPRAM OXALATE
  11. ARIMIDEX [Suspect]
     Active Substance: ANASTROZOLE
     Indication: BREAST CANCER
     Route: 048
     Dates: start: 200402
  12. ASACOL [Concomitant]
     Active Substance: MESALAMINE
  13. STOOL SOFTENER [Concomitant]
     Active Substance: DOCUSATE CALCIUM
  14. FOSAMAX [Concomitant]
     Active Substance: ALENDRONATE SODIUM
  15. MEDICATION FOR CROHN^S [Concomitant]
  16. NEXIUM [Suspect]
     Active Substance: ESOMEPRAZOLE MAGNESIUM
     Indication: DYSPEPSIA
     Route: 048
     Dates: start: 20030619
  17. TUMS OTC [Concomitant]
  18. PROCHLORPERAZINE. [Concomitant]
     Active Substance: PROCHLORPERAZINE
     Dates: start: 20030422
  19. SEROQUEL [Concomitant]
     Active Substance: QUETIAPINE FUMARATE
     Route: 048
     Dates: start: 20101214
  20. OMEPRAZOLE. [Suspect]
     Active Substance: OMEPRAZOLE
     Indication: DYSPEPSIA
     Route: 048
  21. XANAX [Concomitant]
     Active Substance: ALPRAZOLAM
  22. SERTRALINE [Concomitant]
     Active Substance: SERTRALINE HYDROCHLORIDE
     Route: 048
  23. HYDROCODONE [Concomitant]
     Active Substance: HYDROCODONE
  24. NEXIUM [Suspect]
     Active Substance: ESOMEPRAZOLE MAGNESIUM
     Indication: DYSPEPSIA
     Route: 048
     Dates: start: 2003, end: 2006
  25. NEXIUM [Suspect]
     Active Substance: ESOMEPRAZOLE MAGNESIUM
     Indication: GASTROOESOPHAGEAL REFLUX DISEASE
     Route: 048
     Dates: start: 20030619
  26. ZOFRAN [Concomitant]
     Active Substance: ONDANSETRON HYDROCHLORIDE
     Dates: start: 20030422
  27. TRAZODONE [Concomitant]
     Active Substance: TRAZODONE HYDROCHLORIDE
     Route: 048

REACTIONS (21)
  - Upper limb fracture [Unknown]
  - Dry skin [Unknown]
  - Ankle fracture [Unknown]
  - Amnesia [Unknown]
  - Osteoporosis [Unknown]
  - Wrist fracture [Unknown]
  - Convulsion [Unknown]
  - Osteopenia [Unknown]
  - Vulvovaginal dryness [Unknown]
  - Bone disorder [Unknown]
  - Stress fracture [Unknown]
  - Mood swings [Unknown]
  - Agitation [Unknown]
  - Bone pain [Unknown]
  - Foot fracture [Unknown]
  - Hypercholesterolaemia [Unknown]
  - Arthralgia [Unknown]
  - Myalgia [Unknown]
  - Confusional state [Unknown]
  - Hot flush [Unknown]
  - Multiple fractures [Unknown]

NARRATIVE: CASE EVENT DATE: 200408
